FAERS Safety Report 12491884 (Version 1)
Quarter: 2016Q2

REPORT INFORMATION
  Report Type: Spontaneous
  Country: US (occurrence: None)
  Receive Date: 20160622
  Receipt Date: 20160622
  Transmission Date: 20160815
  Serious: Yes (Other)
  Sender: FDA-Public Use
  Company Number: None

PATIENT
  Age: 56 Year
  Sex: Male
  Weight: 113 kg

DRUGS (1)
  1. OXALIPLATIN. [Suspect]
     Active Substance: OXALIPLATIN
     Indication: NEOPLASM MALIGNANT
     Dosage: 295 MG ONCE INTRAVENOUS DRIP
     Route: 041
     Dates: start: 20160525, end: 20160615

REACTIONS (3)
  - Rash pruritic [None]
  - Rash erythematous [None]
  - Swollen tongue [None]

NARRATIVE: CASE EVENT DATE: 20160525
